FAERS Safety Report 7542959-X (Version None)
Quarter: 2011Q2

REPORT INFORMATION
  Report Type: 
  Country: None (occurrence: None)
  Receive Date: 20110613
  Receipt Date: 20110607
  Transmission Date: 20111010
  Serious: Yes (Hospitalization)
  Sender: FDA-Public Use
  Company Number: AT-BRISTOL-MYERS SQUIBB COMPANY-15724636

PATIENT
  Age: 43 Year
  Sex: Male

DRUGS (4)
  1. FLUNITRAZEPAM [Concomitant]
  2. ATAZANAVIR [Suspect]
     Indication: HIV INFECTION
     Dosage: INTERRUPTED ON 12APR2011 RESTARTED ON 5MAY2011
     Route: 048
     Dates: start: 20101019
  3. TRUVADA [Suspect]
     Indication: HIV INFECTION
     Dosage: INTERRUPTED ON 12APR2011 RESTARTED ON 5MAY2011
     Route: 048
     Dates: start: 20101019
  4. MORPHINE SULFATE [Concomitant]

REACTIONS (3)
  - TUBULOINTERSTITIAL NEPHRITIS [None]
  - ENTEROBACTER SEPSIS [None]
  - RENAL NECROSIS [None]
